FAERS Safety Report 8265235-9 (Version None)
Quarter: 2012Q2

REPORT INFORMATION
  Report Type: 
  Country: None (occurrence: None)
  Receive Date: 20120406
  Receipt Date: 20120405
  Transmission Date: 20120825
  Serious: Yes (Death, Hospitalization, Other)
  Sender: FDA-Public Use
  Company Number: JP-ABBOTT-12P-087-0893224-00

PATIENT
  Sex: Male

DRUGS (8)
  1. HUMIRA [Suspect]
     Indication: RHEUMATOID ARTHRITIS
     Route: 058
     Dates: start: 20090605, end: 20110801
  2. MIZORIBINE [Concomitant]
     Indication: RHEUMATOID ARTHRITIS
     Dates: start: 20090713, end: 20110801
  3. ABATACEPT [Concomitant]
     Indication: RHEUMATOID ARTHRITIS
     Dates: start: 20110801, end: 20111219
  4. PREDNISOLONE [Concomitant]
     Indication: RHEUMATOID ARTHRITIS
     Dosage: DAILY DOSE: 5MG
     Route: 048
     Dates: start: 20110509, end: 20110828
  5. PREDNISOLONE [Concomitant]
     Dosage: DAILY DOSE: 4MG
     Dates: start: 20110829, end: 20111219
  6. FEBUXOSTAT [Concomitant]
     Indication: HYPERURICAEMIA
     Dosage: DAILY DOSE: 20MG
     Dates: start: 20110606, end: 20111219
  7. TACROLIMUS [Concomitant]
     Indication: RHEUMATOID ARTHRITIS
     Dates: start: 20100301, end: 20110801
  8. TRIMETHOPRIM + SULFAMETHOXAZOLE [Concomitant]
     Indication: INFECTION PROPHYLAXIS
     Dates: start: 20090605, end: 20111121

REACTIONS (13)
  - C-REACTIVE PROTEIN INCREASED [None]
  - RENAL DISORDER [None]
  - INFECTION [None]
  - MYOCARDIAL INFARCTION [None]
  - RESPIRATORY DISORDER [None]
  - CARDIAC ARREST [None]
  - DYSPNOEA [None]
  - ELECTROCARDIOGRAM ST SEGMENT ELEVATION [None]
  - CONDITION AGGRAVATED [None]
  - RESPIRATORY FAILURE [None]
  - DYSPNOEA EXERTIONAL [None]
  - INTERSTITIAL LUNG DISEASE [None]
  - HAEMOPTYSIS [None]
